FAERS Safety Report 8792252 (Version 1)
Quarter: 2012Q4

REPORT INFORMATION
  Report Type: 
  Country: US (occurrence: US)
  Receive Date: 20120918
  Receipt Date: 20120918
  Transmission Date: 20130627
  Serious: No
  Sender: FDA-Public Use
  Company Number: US-VERTEX PHARMACEUTICAL INC.-2012-020141

PATIENT
  Age: 51 None
  Sex: Female
  Weight: 80 kg

DRUGS (7)
  1. INCIVEK [Suspect]
     Indication: HEPATITIS C
     Dosage: 750 mg, tid
     Route: 048
     Dates: start: 20120801
  2. PEGASYS [Suspect]
     Indication: HEPATITIS C
     Dosage: 180 ?g, UNK
     Route: 058
     Dates: start: 20120801
  3. RIBAVIRIN [Suspect]
     Indication: HEPATITIS C
     Dosage: 400 mg, UNK
     Route: 048
     Dates: start: 20120801
  4. METFORMIN [Concomitant]
     Dosage: 100 mg, bid
     Route: 048
  5. AMARYL [Concomitant]
     Dosage: UNK mg, qd
     Route: 048
  6. LISINOPRIL AND HYDROCHLOROTHIAZIDE [Concomitant]
     Dosage: 2 DF, qd
     Route: 048
  7. ASPIRIN [Concomitant]
     Dosage: 81 mg, qd
     Route: 048

REACTIONS (5)
  - Weight decreased [Not Recovered/Not Resolved]
  - Blood potassium decreased [Not Recovered/Not Resolved]
  - Fatigue [Not Recovered/Not Resolved]
  - Rash pruritic [Unknown]
  - Nausea [Not Recovered/Not Resolved]
